FAERS Safety Report 7207416-9 (Version None)
Quarter: 2011Q1

REPORT INFORMATION
  Report Type: 
  Country: None (occurrence: None)
  Receive Date: 20110103
  Receipt Date: 20101217
  Transmission Date: 20110831
  Serious: Yes (Hospitalization, Other)
  Sender: FDA-Public Use
  Company Number: PHHY2010JP85970

PATIENT
  Age: 47 Year
  Sex: Female

DRUGS (1)
  1. ISONIAZID [Suspect]
     Indication: PROPHYLAXIS
     Dosage: UNK
     Dates: start: 20080926, end: 20101024

REACTIONS (12)
  - FATIGUE [None]
  - DYSPNOEA EXERTIONAL [None]
  - HAEMOGLOBIN DECREASED [None]
  - IRON BINDING CAPACITY TOTAL DECREASED [None]
  - APLASIA PURE RED CELL [None]
  - BLOOD IMMUNOGLOBULIN G INCREASED [None]
  - PYREXIA [None]
  - BLOOD IRON INCREASED [None]
  - ANAEMIA [None]
  - PALPITATIONS [None]
  - RETICULOCYTE COUNT DECREASED [None]
  - ERYTHROBLAST COUNT DECREASED [None]
